FAERS Safety Report 7045757-9 (Version None)
Quarter: 2010Q4

REPORT INFORMATION
  Report Type: 
  Country: None (occurrence: None)
  Receive Date: 20101014
  Receipt Date: 20101012
  Transmission Date: 20110411
  Serious: Yes (Death)
  Sender: FDA-Public Use
  Company Number: CA-B.I. PHARMACEUTICALS,INC./RIDGEFIELD-2010-CN-00642CN

PATIENT
  Sex: Male

DRUGS (7)
  1. CATAPRES [Suspect]
     Indication: CANCER PAIN
     Dosage: 874 MCG
     Route: 037
     Dates: start: 20100601
  2. BUPIVACAINE HCL [Concomitant]
     Indication: CANCER PAIN
     Route: 037
  3. MORPHINE [Concomitant]
     Indication: CANCER PAIN
     Route: 037
  4. LORAZEPAM [Concomitant]
     Indication: ANXIETY
     Route: 058
  5. NOZINAN [Concomitant]
     Indication: CANCER PAIN
     Route: 048
  6. SCOPOLAMINE [Concomitant]
     Indication: ANXIETY
     Route: 058
  7. HYDROMORPHONE HCL [Concomitant]
     Indication: CANCER PAIN
     Route: 058

REACTIONS (1)
  - LUNG NEOPLASM MALIGNANT [None]
